FAERS Safety Report 22103395 (Version 1)
Quarter: 2023Q1

REPORT INFORMATION
  Report Type: Spontaneous
  Country: SE (occurrence: SE)
  Receive Date: 20230316
  Receipt Date: 20230316
  Transmission Date: 20230417
  Serious: Yes (Hospitalization)
  Sender: FDA-Public Use
  Company Number: None

PATIENT
  Age: 29 Year
  Sex: Female

DRUGS (2)
  1. VENLAFAXINE [Suspect]
     Active Substance: VENLAFAXINE HYDROCHLORIDE
     Indication: Product used for unknown indication
     Dosage: 80 ST 150 MG VENLAFAXINE
     Route: 065
     Dates: start: 20191107, end: 20191107
  2. PROPIOMAZINE [Suspect]
     Active Substance: PROPIOMAZINE
     Indication: Product used for unknown indication
     Dosage: 1 G PROPANE
     Dates: start: 20191107, end: 20191107

REACTIONS (7)
  - Depressed level of consciousness [Unknown]
  - Intentional overdose [Unknown]
  - Tachycardia [Unknown]
  - Mydriasis [Unknown]
  - Intentional self-injury [Unknown]
  - Hyperreflexia [Unknown]
  - Body temperature increased [Unknown]

NARRATIVE: CASE EVENT DATE: 20191107
